FAERS Safety Report 5273932-2 (Version None)
Quarter: 2007Q1

REPORT INFORMATION
  Report Type: 
  Country: None (occurrence: None)
  Receive Date: 20070323
  Receipt Date: 20070314
  Transmission Date: 20070707
  Serious: Yes (Hospitalization, Disabling)
  Sender: FDA-Public Use
  Company Number: 2007AP01643

PATIENT
  Age: 73 Year
  Sex: Male

DRUGS (2)
  1. ZOLADEX [Suspect]
     Indication: PROSTATE CANCER
     Route: 058
     Dates: start: 20060902, end: 20061127
  2. HARNAL [Concomitant]
     Route: 048
     Dates: start: 20040302, end: 20061224

REACTIONS (2)
  - POLYMYOSITIS [None]
  - RHEUMATOID ARTHRITIS [None]
